FAERS Safety Report 7720029-5 (Version None)
Quarter: 2011Q3

REPORT INFORMATION
  Report Type: 
  Country: None (occurrence: None)
  Receive Date: 20110831
  Receipt Date: 20100126
  Transmission Date: 20111222
  Serious: No
  Sender: FDA-Public Use
  Company Number: 2010BI003240

PATIENT
  Sex: Female

DRUGS (2)
  1. TYSABRI [Suspect]
     Indication: MULTIPLE SCLEROSIS
     Route: 042
     Dates: start: 20080108, end: 20100112
  2. TYSABRI [Suspect]
     Route: 042
     Dates: start: 20100629

REACTIONS (6)
  - GENERAL SYMPTOM [None]
  - GASTROOESOPHAGEAL REFLUX DISEASE [None]
  - ABDOMINAL DISCOMFORT [None]
  - ANXIETY [None]
  - ABDOMINAL PAIN [None]
  - CONSTIPATION [None]
